FAERS Safety Report 9264350 (Version 1)
Quarter: 2013Q2

REPORT INFORMATION
  Report Type: Spontaneous
  Country: US (occurrence: US)
  Receive Date: 20130430
  Receipt Date: 20130430
  Transmission Date: 20140414
  Serious: No
  Sender: FDA-Public Use
  Company Number: US-009507513-1304USA014191

PATIENT
  Age: 62 Year
  Sex: Male

DRUGS (4)
  1. VICTRELIS [Suspect]
     Indication: CHRONIC HEPATITIS C
     Dosage: 800 MG, TID
     Route: 048
     Dates: start: 20130414
  2. PEGASYS [Suspect]
     Indication: HEPATITIS C
     Dosage: UNK
     Dates: start: 20130317
  3. RIBASPHERE [Suspect]
     Indication: HEPATITIS C
     Dosage: UNK
     Dates: start: 20130317
  4. NEUPOGEN [Concomitant]

REACTIONS (5)
  - Dyspepsia [Not Recovered/Not Resolved]
  - Abdominal discomfort [Unknown]
  - Vomiting [Unknown]
  - Platelet count decreased [Unknown]
  - Fatigue [Unknown]
